FAERS Safety Report 8511037-5 (Version None)
Quarter: 2012Q2

REPORT INFORMATION
  Report Type: 
  Country: None (occurrence: None)
  Receive Date: 20120406
  Receipt Date: 20090731
  Transmission Date: 20120825
  Serious: Yes (Hospitalization)
  Sender: FDA-Public Use
  Company Number: PHEH2009US07531

PATIENT
  Age: 47 Year
  Sex: Female

DRUGS (6)
  1. TASIGNA [Suspect]
     Dosage: 800;200 MG, QD, ORAL
     Route: 048
     Dates: start: 20090701
  2. TASIGNA [Suspect]
     Dosage: 800;200 MG, QD, ORAL
     Route: 048
     Dates: start: 20090629, end: 20090702
  3. HYDROMORPHONE HCL [Concomitant]
  4. HYDROCODONE W/APAP (HYDROCODONE, PARACETAMOL) [Concomitant]
  5. COUMADIN [Concomitant]
  6. PRILOSEC [Concomitant]

REACTIONS (3)
  - PANCREATITIS [None]
  - LIPASE INCREASED [None]
  - ABDOMINAL PAIN [None]
